FAERS Safety Report 4442257-7 (Version None)
Quarter: 2004Q3

REPORT INFORMATION
  Report Type: 
  Country: None (occurrence: None)
  Receive Date: 20040903
  Receipt Date: 20040716
  Transmission Date: 20050211
  Serious: Yes (Other)
  Sender: FDA-Public Use
  Company Number: 2004UW14810

PATIENT
  Age: 75 Year
  Sex: Female
  Weight: 74.8435 kg

DRUGS (6)
  1. CRESTOR [Suspect]
     Indication: HYPERCHOLESTEROLAEMIA
     Dosage: 15 MG QD PO
     Route: 048
  2. TOPROL-XL [Concomitant]
  3. PLAVIX [Concomitant]
  4. PAXIL [Concomitant]
  5. SYNTHROID [Concomitant]
  6. ASPIRIN [Concomitant]

REACTIONS (3)
  - ARTHRALGIA [None]
  - FATIGUE [None]
  - MYALGIA [None]
